FAERS Safety Report 17252004 (Version 1)
Quarter: 2020Q1

REPORT INFORMATION
  Report Type: Spontaneous
  Country: FR (occurrence: FR)
  Receive Date: 20200109
  Receipt Date: 20200109
  Transmission Date: 20200409
  Serious: Yes (Hospitalization)
  Sender: FDA-Public Use
  Company Number: FR-MYLANLABS-2020M1001694

PATIENT
  Age: 66 Year
  Sex: Female
  Weight: 75 kg

DRUGS (6)
  1. ACETYLCYSTEINE. [Suspect]
     Active Substance: ACETYLCYSTEINE
     Indication: ASTHMA
     Dosage: 6 DOSAGE FORM, QD
     Route: 048
     Dates: start: 20190827, end: 20190830
  2. CLARITHROMYCINE BIOGARAN [Suspect]
     Active Substance: CLARITHROMYCIN
     Indication: ASTHMA
     Dosage: 2 DOSAGE FORM, QD
     Route: 048
     Dates: start: 20190827, end: 20190830
  3. HELICIDINE [Suspect]
     Active Substance: ESCARGOT
     Indication: ASTHMA
     Dosage: 2 DOSAGE FORM, QD
     Route: 048
     Dates: start: 20190827, end: 20190830
  4. DERINOX                            /06053201/ [Suspect]
     Active Substance: NAPHAZOLINE NITRATE\PREDNISOLONE
     Indication: ASTHMA
     Dosage: 3 DOSAGE FORM, QD
     Route: 045
     Dates: start: 20190827, end: 20190830
  5. SYMBICORT [Suspect]
     Active Substance: BUDESONIDE\FORMOTEROL FUMARATE DIHYDRATE
     Indication: ASTHMA
     Dosage: 2 DOSAGE FORM, QD
     Route: 055
     Dates: start: 20190827, end: 20190830
  6. PREDNISOLONE. [Suspect]
     Active Substance: PREDNISOLONE
     Indication: ASTHMA
     Dosage: 2 DOSAGE FORM, QD
     Route: 065
     Dates: start: 20190827

REACTIONS (4)
  - Hypoxia [Recovering/Resolving]
  - Polyuria [Recovering/Resolving]
  - Tachycardia [Recovering/Resolving]
  - Sense of oppression [Recovering/Resolving]

NARRATIVE: CASE EVENT DATE: 20190830
